FAERS Safety Report 22182726 (Version 1)
Quarter: 2023Q2

REPORT INFORMATION
  Report Type: Spontaneous
  Country: US (occurrence: None)
  Receive Date: 20230406
  Receipt Date: 20230406
  Transmission Date: 20230722
  Serious: Yes (Hospitalization)
  Sender: FDA-Public Use
  Company Number: None

PATIENT
  Age: 62 Year
  Sex: Male
  Weight: 70.4 kg

DRUGS (1)
  1. CISPLATIN [Suspect]
     Active Substance: CISPLATIN
     Dates: end: 20221206

REACTIONS (7)
  - Sickle cell disease [None]
  - Pulmonary oedema [None]
  - Dehydration [None]
  - Drug intolerance [None]
  - Atrial tachycardia [None]
  - Dysphagia [None]
  - Decreased appetite [None]

NARRATIVE: CASE EVENT DATE: 20221227
